FAERS Safety Report 16087959 (Version 5)
Quarter: 2022Q1

REPORT INFORMATION
  Report Type: Spontaneous
  Country: US (occurrence: None)
  Receive Date: 20190319
  Receipt Date: 20220215
  Transmission Date: 20220423
  Serious: Yes (Other)
  Sender: FDA-Public Use
  Company Number: 2018SF34383

PATIENT
  Age: 817 Month
  Sex: Male
  Weight: 95.3 kg

DRUGS (17)
  1. PRILOSEC [Suspect]
     Active Substance: OMEPRAZOLE MAGNESIUM
     Route: 048
  2. PRILOSEC [Suspect]
     Active Substance: OMEPRAZOLE MAGNESIUM
     Route: 048
     Dates: start: 20060101, end: 20081231
  3. PRILOSEC [Suspect]
     Active Substance: OMEPRAZOLE MAGNESIUM
     Route: 048
  4. NEXIUM [Suspect]
     Active Substance: ESOMEPRAZOLE MAGNESIUM
     Route: 048
  5. NEXIUM 24HR [Suspect]
     Active Substance: ESOMEPRAZOLE MAGNESIUM
     Route: 048
  6. PRILOSEC OTC [Suspect]
     Active Substance: OMEPRAZOLE MAGNESIUM
     Route: 048
     Dates: start: 20060101, end: 20081010
  7. PREVACID IV [Suspect]
     Active Substance: LANSOPRAZOLE
     Route: 065
  8. PREVACID IV [Suspect]
     Active Substance: LANSOPRAZOLE
     Route: 065
     Dates: start: 20060101, end: 20081231
  9. PREVACID [Suspect]
     Active Substance: LANSOPRAZOLE
     Route: 065
  10. PREVACID 24 HR [Suspect]
     Active Substance: LANSOPRAZOLE
     Route: 065
  11. METHICILLIN [Concomitant]
     Active Substance: METHICILLIN
  12. VANCOMYCIN [Concomitant]
     Active Substance: VANCOMYCIN
  13. TUMS [Concomitant]
     Active Substance: CALCIUM CARBONATE
  14. PEPTO-BISMOL [Concomitant]
     Active Substance: BISMUTH SUBSALICYLATE
  15. MORPHINE [Concomitant]
     Active Substance: MORPHINE
  16. METOPROLOL [Concomitant]
     Active Substance: METOPROLOL
  17. PROTONIX [Concomitant]
     Active Substance: PANTOPRAZOLE SODIUM
     Dates: start: 20100416

REACTIONS (4)
  - Acute kidney injury [Recovered/Resolved]
  - Chronic kidney disease [Unknown]
  - End stage renal disease [Recovered/Resolved]
  - Renal injury [Unknown]
